FAERS Safety Report 13938393 (Version 3)
Quarter: 2017Q4

REPORT INFORMATION
  Report Type: Report from Study
  Country: IT (occurrence: IT)
  Receive Date: 20170905
  Receipt Date: 20171020
  Transmission Date: 20180320
  Serious: Yes (Other)
  Sender: FDA-Public Use
  Company Number: IT-TEVA-801730ACC

PATIENT
  Age: 60 Year

DRUGS (2)
  1. RIBAVIRIN. [Suspect]
     Active Substance: RIBAVIRIN
     Indication: CHRONIC HEPATITIS C
     Dosage: FOR 24 WEEKS
     Route: 065
  2. SOFOSBUVIR [Suspect]
     Active Substance: SOFOSBUVIR
     Indication: CHRONIC HEPATITIS C
     Dosage: FOR 24 WEEKS
     Route: 065

REACTIONS (5)
  - Hepatitis C [Unknown]
  - Drug ineffective [Unknown]
  - Treatment failure [Recovered/Resolved]
  - Virologic failure [Recovered/Resolved]
  - Pathogen resistance [Recovered/Resolved]
